FAERS Safety Report 22311554 (Version 1)
Quarter: 2023Q2

REPORT INFORMATION
  Report Type: Spontaneous
  Country: US (occurrence: GB)
  Receive Date: 20230511
  Receipt Date: 20230511
  Transmission Date: 20230722
  Serious: No
  Sender: FDA-Public Use
  Company Number: US-BRISTOL-MYERS SQUIBB COMPANY-2023-065040

PATIENT
  Age: 61 Year
  Sex: Female

DRUGS (1)
  1. AZACITIDINE [Suspect]
     Active Substance: AZACITIDINE
     Indication: Acute myeloid leukaemia
     Dosage: FREQUENCY : ONCE DAILY ON DAYS 1 THROUGH 14 OF EACH 28-DAY CYCLE

REACTIONS (2)
  - Abdominal discomfort [Unknown]
  - Off label use [Unknown]
